FAERS Safety Report 6484023-7 (Version None)
Quarter: 2009Q4

REPORT INFORMATION
  Report Type: 
  Country: None (occurrence: None)
  Receive Date: 20091208
  Receipt Date: 20091208
  Transmission Date: 20100525
  Serious: No
  Sender: FDA-Public Use
  Company Number: None

PATIENT
  Age: 64 Year
  Sex: Female
  Weight: 72.5755 kg

DRUGS (3)
  1. COLD REMEDY NASAL GEL [Suspect]
     Dosage: Q 4 HRS
     Dates: start: 20090301, end: 20090301
  2. SYNTHROID [Concomitant]
  3. VERAPAMIL [Concomitant]

REACTIONS (2)
  - AGEUSIA [None]
  - ANOSMIA [None]
